FAERS Safety Report 7396331-6 (Version None)
Quarter: 2011Q1

REPORT INFORMATION
  Report Type: 
  Country: None (occurrence: None)
  Receive Date: 20110325
  Receipt Date: 20110314
  Transmission Date: 20110831
  Serious: Yes (Other)
  Sender: FDA-Public Use
  Company Number: 2010P1002293

PATIENT
  Age: 61 Year
  Sex: Female
  Weight: 127.0072 kg

DRUGS (11)
  1. FENTANYL [Suspect]
     Indication: PAIN
     Dosage: 1 PATCH; TDER
     Route: 062
     Dates: start: 20100401, end: 20100101
  2. PERCOCET [Suspect]
  3. FENTANYL [Suspect]
     Indication: PAIN
     Dates: start: 20100101, end: 20100101
  4. CARISOPRODOL [Concomitant]
  5. UNSPECIFIED EPIDURAL SHOT [Concomitant]
  6. VITAMIN (UNSPECIEIED) [Concomitant]
  7. CALCIUM [Concomitant]
  8. FENTANYL [Suspect]
     Indication: PAIN
     Dosage: 1 PATCH; Q3D;TDER
     Route: 062
     Dates: start: 20100101
  9. GABAPENTIN [Suspect]
  10. CYMBALTA [Concomitant]
  11. ENOOCET (ACETAMINOPHEN AND OXYCODONE) [Concomitant]

REACTIONS (15)
  - APPLICATION SITE ERYTHEMA [None]
  - VITREOUS FLOATERS [None]
  - INADEQUATE ANALGESIA [None]
  - APPLICATION SITE VESICLES [None]
  - APPLICATION SITE EXFOLIATION [None]
  - ABNORMAL SENSATION IN EYE [None]
  - INAPPROPRIATE SCHEDULE OF DRUG ADMINISTRATION [None]
  - DEVICE DEPLOYMENT ISSUE [None]
  - BLINDNESS TRANSIENT [None]
  - PRODUCT ADHESION ISSUE [None]
  - EYE HAEMORRHAGE [None]
  - HYPERHIDROSIS [None]
  - APPLICATION SITE PRURITUS [None]
  - VITREOUS DISORDER [None]
  - DIZZINESS POSTURAL [None]
